FAERS Safety Report 19356669 (Version 1)
Quarter: 2021Q2

REPORT INFORMATION
  Report Type: Spontaneous
  Country: US (occurrence: US)
  Receive Date: 20210602
  Receipt Date: 20210602
  Transmission Date: 20210717
  Serious: Yes (Other)
  Sender: FDA-Public Use
  Company Number: None

PATIENT
  Age: 29 Year
  Sex: Male
  Weight: 68.4 kg

DRUGS (1)
  1. ZIPRASIDONE. [Suspect]
     Active Substance: ZIPRASIDONE
     Indication: AFFECTIVE DISORDER
     Route: 049
     Dates: start: 20210427, end: 20210428

REACTIONS (3)
  - Protrusion tongue [None]
  - Muscle contractions involuntary [None]
  - Dystonia [None]

NARRATIVE: CASE EVENT DATE: 20210429
